FAERS Safety Report 7376032-0 (Version None)
Quarter: 2011Q1

REPORT INFORMATION
  Report Type: 
  Country: None (occurrence: None)
  Receive Date: 20110325
  Receipt Date: 20110321
  Transmission Date: 20110831
  Serious: Yes (Hospitalization)
  Sender: FDA-Public Use
  Company Number: ES-MERCK-1103USA01830

PATIENT
  Age: 65 Year
  Sex: Female

DRUGS (1)
  1. LISINOPRIL [Suspect]
     Indication: HYPERTENSION
     Route: 048

REACTIONS (4)
  - ERYTHEMA [None]
  - DYSPHONIA [None]
  - ANGIOEDEMA [None]
  - DYSPHAGIA [None]
